FAERS Safety Report 5866979-6 (Version None)
Quarter: 2008Q3

REPORT INFORMATION
  Report Type: 
  Country: None (occurrence: None)
  Receive Date: 20080828
  Receipt Date: 20080828
  Transmission Date: 20090109
  Serious: No
  Sender: FDA-Public Use
  Company Number: None

PATIENT
  Age: 73 Year
  Sex: Male
  Weight: 105 kg

DRUGS (1)
  1. VANCOMYCIN HYDROCHLORIDE [Suspect]
     Indication: PROPHYLAXIS
     Dosage: 1 GM ONCE IV
     Dates: start: 20080610, end: 20080610

REACTIONS (7)
  - DEFAECATION URGENCY [None]
  - ERYTHEMA [None]
  - FLUSHING [None]
  - OXYGEN SATURATION DECREASED [None]
  - PRURITUS [None]
  - RASH [None]
  - URTICARIA [None]
